FAERS Safety Report 25323317 (Version 2)
Quarter: 2025Q2

REPORT INFORMATION
  Report Type: Report from Study
  Country: GB (occurrence: GB)
  Receive Date: 20250516
  Receipt Date: 20250613
  Transmission Date: 20250716
  Serious: Yes (Hospitalization)
  Sender: ABBVIE
  Company Number: GB-ABBVIE-6281740

PATIENT
  Age: 67 Year
  Sex: Male

DRUGS (1)
  1. SKYRIZI [Suspect]
     Active Substance: RISANKIZUMAB-RZAA
     Indication: Psoriasis
     Dosage: SKYRIZI 150MG/1ML SOLUTION??1 PRE-FILLED DISPOSABLE INJECTION
     Route: 058
     Dates: start: 20250117

REACTIONS (2)
  - Femur fracture [Unknown]
  - Fall [Unknown]

NARRATIVE: CASE EVENT DATE: 20250101
